FAERS Safety Report 13090971 (Version 2)
Quarter: 2017Q1

REPORT INFORMATION
  Report Type: Report from Study
  Country: US (occurrence: US)
  Receive Date: 20170106
  Receipt Date: 20170111
  Transmission Date: 20170428
  Serious: Yes (Hospitalization)
  Sender: FDA-Public Use
  Company Number: US-ROCHE-1875406

PATIENT
  Sex: Male

DRUGS (30)
  1. XELODA [Suspect]
     Active Substance: CAPECITABINE
     Indication: PRODUCT USED FOR UNKNOWN INDICATION
     Dosage: CYCLE 5
     Route: 065
     Dates: start: 20151215
  2. XELODA [Suspect]
     Active Substance: CAPECITABINE
     Dosage: CYCLE 3
     Route: 065
     Dates: start: 20151103
  3. FOLINIC ACID [Concomitant]
     Active Substance: LEUCOVORIN
     Route: 065
     Dates: start: 20140609, end: 20150121
  4. OXALIPLATIN. [Concomitant]
     Active Substance: OXALIPLATIN
     Route: 065
     Dates: start: 20150922
  5. ATIVAN [Concomitant]
     Active Substance: LORAZEPAM
     Indication: VOMITING
  6. AVASTIN [Suspect]
     Active Substance: BEVACIZUMAB
     Route: 042
     Dates: start: 20151215
  7. XELODA [Suspect]
     Active Substance: CAPECITABINE
     Dosage: 1500 MG
     Route: 065
     Dates: start: 20150922
  8. OXALIPLATIN. [Concomitant]
     Active Substance: OXALIPLATIN
     Dosage: CYCLE 4
     Route: 065
     Dates: start: 20151124
  9. DOXICYCLINE [Concomitant]
     Route: 048
  10. XELODA [Suspect]
     Active Substance: CAPECITABINE
     Dosage: CYCLE 1, TWICE A DAY 7 ON 7 OFF?LAST DOSE AS SINGLE THERAPY ON 29AUG/2015
     Route: 065
     Dates: start: 20150303
  11. OXALIPLATIN. [Concomitant]
     Active Substance: OXALIPLATIN
     Dosage: CYCLE 6
     Route: 065
     Dates: start: 20160106
  12. HYDROCORTISONE. [Concomitant]
     Active Substance: HYDROCORTISONE
     Route: 058
  13. PROCHLORAZINE [Concomitant]
     Indication: VOMITING
  14. OXALIPLATIN. [Concomitant]
     Active Substance: OXALIPLATIN
     Route: 065
     Dates: start: 20140609, end: 20150121
  15. OXALIPLATIN. [Concomitant]
     Active Substance: OXALIPLATIN
     Dosage: CYCLE 5
     Route: 065
     Dates: start: 20151215
  16. IRINOTECAN [Concomitant]
     Active Substance: IRINOTECAN
  17. XELODA [Suspect]
     Active Substance: CAPECITABINE
     Dosage: CYCLE 2
     Route: 065
     Dates: start: 20151013
  18. XELODA [Suspect]
     Active Substance: CAPECITABINE
     Dosage: CYCLE 4
     Route: 065
     Dates: start: 20151124
  19. VECTIBIX [Concomitant]
     Active Substance: PANITUMUMAB
     Route: 065
     Dates: start: 20160303
  20. ERYTHROMYCIN. [Concomitant]
     Active Substance: ERYTHROMYCIN
     Route: 047
  21. AVASTIN [Suspect]
     Active Substance: BEVACIZUMAB
     Route: 042
     Dates: start: 20160127
  22. XELODA [Suspect]
     Active Substance: CAPECITABINE
     Dosage: CYCLE 6
     Route: 065
     Dates: start: 20160106
  23. FLUOROURACIL. [Concomitant]
     Active Substance: FLUOROURACIL
     Route: 065
     Dates: start: 20140609, end: 20150121
  24. ERBITUX [Concomitant]
     Active Substance: CETUXIMAB
     Route: 065
     Dates: start: 20140609, end: 20150121
  25. LORTAB [Concomitant]
     Active Substance: ACETAMINOPHEN\HYDROCODONE BITARTRATE
     Dosage: 5-325 MG
     Route: 048
  26. AVASTIN [Suspect]
     Active Substance: BEVACIZUMAB
     Indication: COLON CANCER
     Route: 042
     Dates: start: 20151124
  27. AVASTIN [Suspect]
     Active Substance: BEVACIZUMAB
     Route: 042
     Dates: start: 20160106
  28. XELODA [Suspect]
     Active Substance: CAPECITABINE
     Dosage: CYCLE 5
     Route: 065
     Dates: start: 20151215
  29. ATIVAN [Concomitant]
     Active Substance: LORAZEPAM
     Indication: NAUSEA
     Route: 048
  30. PROCHLORAZINE [Concomitant]
     Indication: NAUSEA
     Route: 048

REACTIONS (10)
  - Leukopenia [Unknown]
  - Drug ineffective [Unknown]
  - Ocular hyperaemia [Unknown]
  - Lacrimation increased [Unknown]
  - Hypertension [Unknown]
  - Disease progression [Unknown]
  - Stomal hernia [Unknown]
  - Rash [Unknown]
  - Splenomegaly [Unknown]
  - Fatigue [Unknown]
